FAERS Safety Report 23394069 (Version 1)
Quarter: 2024Q1

REPORT INFORMATION
  Report Type: Spontaneous
  Country: US (occurrence: US)
  Receive Date: 20240111
  Receipt Date: 20240111
  Transmission Date: 20240409
  Serious: No
  Sender: FDA-Public Use
  Company Number: US-PFIZER INC-202400004261

PATIENT
  Age: 31 Year
  Sex: Male
  Weight: 50.8 kg

DRUGS (4)
  1. PAXLOVID [Suspect]
     Active Substance: NIRMATRELVIR\RITONAVIR
     Indication: COVID-19 treatment
     Dosage: [NIRMATRELVIR 300 MG]/[RITONAVIR 100 MG]; 2X/DAY
     Dates: start: 20240103
  2. OXCARBAZEPINE [Concomitant]
     Active Substance: OXCARBAZEPINE
     Indication: Seizure
     Dosage: 7 ML, 2X/DAY
  3. RISPERIDONE [Concomitant]
     Active Substance: RISPERIDONE
     Indication: Tonic clonic movements
     Dosage: 2 ML, 2X/DAY
  4. BUSPIRONE HCL [Concomitant]
     Active Substance: BUSPIRONE HYDROCHLORIDE
     Indication: Anxiety
     Dosage: ONE AND HALF TABLET TWICE A DAY

REACTIONS (3)
  - Intentional product misuse [Unknown]
  - Wrong technique in product usage process [Unknown]
  - Hiccups [Recovering/Resolving]

NARRATIVE: CASE EVENT DATE: 20240101
